FAERS Safety Report 9462026 (Version 1)
Quarter: 2013Q3

REPORT INFORMATION
  Report Type: Report from Study
  Country: FR (occurrence: FR)
  Receive Date: 20130816
  Receipt Date: 20130816
  Transmission Date: 20140515
  Serious: Yes (Death, Life-Threatening, Hospitalization, Disabling)
  Sender: FDA-Public Use
  Company Number: FR-JNJFOC-20130806105

PATIENT
  Age: 63 Year
  Sex: Male

DRUGS (14)
  1. DOXORUBICIN HYDROCHLORIDE [Suspect]
     Indication: PLASMA CELL MYELOMA
     Route: 042
     Dates: start: 20120906, end: 20121005
  2. BORTEZOMIB [Suspect]
     Indication: PLASMA CELL MYELOMA
     Route: 065
     Dates: start: 20120906, end: 20121005
  3. CARMUSTINE [Suspect]
     Indication: PLASMA CELL MYELOMA
     Route: 065
     Dates: start: 20120906, end: 20121005
  4. AREDIA [Concomitant]
     Route: 065
  5. TEVAGRASTIM [Concomitant]
     Route: 065
     Dates: start: 20120916, end: 20120922
  6. TEVAGRASTIM [Concomitant]
     Route: 065
  7. TEVAGRASTIM [Concomitant]
     Route: 065
     Dates: start: 20121006, end: 20121010
  8. FORTUM [Concomitant]
     Route: 065
     Dates: start: 20120810, end: 201208
  9. VANCOMYCINE [Concomitant]
     Route: 065
     Dates: start: 20120924, end: 20120930
  10. VANCOMYCINE [Concomitant]
     Route: 065
     Dates: start: 20120810, end: 201208
  11. FLAGYL [Concomitant]
     Route: 065
     Dates: start: 201209, end: 20120924
  12. ROCEPHIN [Concomitant]
     Route: 065
     Dates: start: 20121018, end: 20121022
  13. TIENAM [Concomitant]
     Route: 065
     Dates: start: 20120918, end: 20120927
  14. OFLOCET [Concomitant]
     Route: 065
     Dates: start: 20120918, end: 20120927

REACTIONS (8)
  - General physical condition abnormal [Fatal]
  - Pancytopenia [Recovered/Resolved]
  - Citrobacter infection [Unknown]
  - Asthenia [Unknown]
  - Hyperthermia [Unknown]
  - Confusional state [Unknown]
  - Somnolence [Unknown]
  - Melaena [Unknown]
